FAERS Safety Report 21783695 (Version 5)
Quarter: 2023Q4

REPORT INFORMATION
  Report Type: Spontaneous
  Country: US (occurrence: US)
  Receive Date: 20221227
  Receipt Date: 20231130
  Transmission Date: 20240109
  Serious: No
  Sender: FDA-Public Use
  Company Number: US-PFIZER INC-PV202200129544

PATIENT
  Age: 70 Year
  Sex: Female

DRUGS (1)
  1. IBRANCE [Suspect]
     Active Substance: PALBOCICLIB
     Indication: Breast cancer female
     Dosage: 75 MG, CYCLIC (FOR 21 DAYS FOLLOWED BY 7 DAYS OFF TREATMENT)
     Route: 048

REACTIONS (3)
  - Off label use [Unknown]
  - Neutrophil count decreased [Unknown]
  - White blood cell count decreased [Unknown]
